FAERS Safety Report 9096656 (Version 1)
Quarter: 2013Q1

REPORT INFORMATION
  Report Type: Spontaneous
  Country: US (occurrence: US)
  Receive Date: 20130211
  Receipt Date: 20130211
  Transmission Date: 20140127
  Serious: Yes (Other)
  Sender: FDA-Public Use
  Company Number: US-BAYER-2013-015122

PATIENT
  Age: 31 Year
  Sex: Female

DRUGS (4)
  1. YASMIN [Suspect]
     Indication: POLYCYSTIC OVARIES
     Dosage: ONE DAILY
  2. ZOLOFT [Concomitant]
     Dosage: 100 MG, DAILY
     Dates: start: 20050110
  3. MOBIC [Concomitant]
     Dosage: 7.5 MG, TID
     Dates: start: 20050110
  4. VICODIN [Concomitant]
     Dosage: AS NEEDED
     Dates: start: 20050110

REACTIONS (2)
  - Deep vein thrombosis [Recovered/Resolved]
  - Thrombophlebitis superficial [None]
